FAERS Safety Report 7449448-1 (Version None)
Quarter: 2011Q2

REPORT INFORMATION
  Report Type: 
  Country: None (occurrence: None)
  Receive Date: 20110502
  Receipt Date: 20110425
  Transmission Date: 20111010
  Serious: No
  Sender: FDA-Public Use
  Company Number: US-BIOGENIDEC-2011BI015691

PATIENT
  Age: 31 Year
  Sex: Female

DRUGS (1)
  1. AVONEX [Suspect]
     Indication: MULTIPLE SCLEROSIS
     Route: 030
     Dates: start: 20100808, end: 20110220

REACTIONS (4)
  - JOINT SWELLING [None]
  - MULTIPLE SCLEROSIS [None]
  - JOINT STIFFNESS [None]
  - PARAESTHESIA [None]
